FAERS Safety Report 6639765 (Version 14)
Quarter: 2014Q2

REPORT INFORMATION
  Report Type: Spontaneous
  Country: US (occurrence: US)
  Receive Date: 20080514
  Receipt Date: 20140626
  Transmission Date: 20141212
  Serious: Yes (Other)
  Sender: FDA-Public Use
  Company Number: PHEH2008US04440

PATIENT
  Age: 55 Year
  Sex: Female

DRUGS (26)
  1. ZOMETA [Suspect]
     Indication: PLASMA CELL MYELOMA
     Dosage: UNK UKN, UNK
     Route: 041
     Dates: start: 200201, end: 2004
  2. CALCIUM [Concomitant]
     Indication: BONE DENSITY DECREASED
     Dosage: UNK
  3. ATENOLOL [Concomitant]
     Indication: HYPERTENSION
     Dosage: UNK UKN, UNK
  4. LESCOL [Concomitant]
     Indication: BLOOD CHOLESTEROL
     Dosage: UNK UKN, UNK
  5. TAXOTERE [Concomitant]
     Dosage: UNK UKN, UNK
     Dates: start: 200002
  6. AREDIA [Concomitant]
     Dosage: UNK UKN, UNK
  7. HERCEPTIN ^GENENTECH^ [Concomitant]
     Dosage: UNK UKN, UNK
  8. VIOXX [Concomitant]
     Dosage: UNK UKN, UNK
  9. MOTRIN [Concomitant]
     Dosage: UNK UKN, UNK
  10. STEROIDS NOS [Concomitant]
     Dosage: UNK UKN, UNK
  11. ROCEPHIN [Concomitant]
     Dosage: UNK UKN, UNK
  12. BACTRIM [Concomitant]
     Dosage: UNK UKN, UNK
  13. DIOVAN ^CIBA-GEIGY^ [Concomitant]
     Dosage: UNK UKN, UNK
  14. WARFARIN [Concomitant]
  15. CALCIUM WITH VITAMIN D [Concomitant]
  16. COUMADINE [Concomitant]
  17. ALLOPURINOL [Concomitant]
  18. ADVIL [Concomitant]
  19. TYLENOL [Concomitant]
  20. DIOVAN HCT [Concomitant]
  21. LESCOL XL [Concomitant]
  22. EVISTA [Concomitant]
  23. VINCRISTINE [Concomitant]
  24. ADRIAMYCIN [Concomitant]
  25. DEXAMETHASONE [Concomitant]
  26. PEPCID [Concomitant]

REACTIONS (69)
  - Compression fracture [Unknown]
  - Osteonecrosis of jaw [Unknown]
  - Pain [Unknown]
  - Discomfort [Unknown]
  - Hypophagia [Unknown]
  - Deformity [Unknown]
  - Emotional distress [Unknown]
  - Anxiety [Unknown]
  - Life expectancy shortened [Unknown]
  - Anhedonia [Unknown]
  - Physical disability [Unknown]
  - Injury [Unknown]
  - Loose tooth [Unknown]
  - Wound dehiscence [Unknown]
  - Osteomyelitis [Unknown]
  - Bone disorder [Unknown]
  - Breath odour [Unknown]
  - Pain in jaw [Unknown]
  - Hypoaesthesia oral [Unknown]
  - Gingivitis [Unknown]
  - Swelling [Unknown]
  - Musculoskeletal discomfort [Unknown]
  - Road traffic accident [Unknown]
  - Soft tissue injury [Unknown]
  - Parotid gland enlargement [Unknown]
  - Nasal polyps [Unknown]
  - Atelectasis [Unknown]
  - Cervical dysplasia [Unknown]
  - Cervicitis [Unknown]
  - Arthropod bite [Unknown]
  - Breast hyperplasia [Unknown]
  - Osteopenia [Unknown]
  - Ejection fraction decreased [Unknown]
  - Epistaxis [Unknown]
  - Febrile neutropenia [Unknown]
  - Blood immunoglobulin M decreased [Unknown]
  - Blood immunoglobulin A decreased [Unknown]
  - Rash [Unknown]
  - Sciatica [Unknown]
  - Dyspnoea [Unknown]
  - Nasal congestion [Unknown]
  - Melanocytic naevus [Unknown]
  - Malignant melanoma in situ [Unknown]
  - Scar [Unknown]
  - Palpitations [Unknown]
  - Dizziness [Unknown]
  - Papule [Unknown]
  - Hyperkeratosis [Unknown]
  - Erythema [Unknown]
  - Seborrhoeic keratosis [Unknown]
  - Haemangioma of skin [Unknown]
  - Hyperlipidaemia [Unknown]
  - Plasma cell myeloma in remission [Unknown]
  - Vomiting [Unknown]
  - Wheezing [Unknown]
  - Weight decreased [Unknown]
  - Chest pain [Unknown]
  - Headache [Unknown]
  - Pyrexia [Unknown]
  - Anaemia [Unknown]
  - Musculoskeletal pain [Unknown]
  - Skin papilloma [Unknown]
  - Skin ulcer [Unknown]
  - Squamous cell carcinoma [Unknown]
  - Second primary malignancy [Unknown]
  - Dysplastic naevus [Unknown]
  - Skin lesion [Unknown]
  - Arthritis [Unknown]
  - Diabetes mellitus [Unknown]
